FAERS Safety Report 18605026 (Version 1)
Quarter: 2020Q4

REPORT INFORMATION
  Report Type: Spontaneous
  Country: CN (occurrence: CN)
  Receive Date: 20201211
  Receipt Date: 20201211
  Transmission Date: 20210114
  Serious: Yes (Hospitalization)
  Sender: FDA-Public Use
  Company Number: CN-NOVOPROD-771951

PATIENT
  Age: 62 Year
  Sex: Male
  Weight: 60 kg

DRUGS (6)
  1. TRESIBA [Suspect]
     Active Substance: INSULIN DEGLUDEC
     Dosage: 13 U,UNK
     Route: 058
     Dates: start: 20201116
  2. NOVORAPID [Suspect]
     Active Substance: INSULIN ASPART
     Indication: TYPE 2 DIABETES MELLITUS
     Dosage: 5-7 U, TID, BEFORE THREE MEALS.
     Route: 058
     Dates: start: 20120701
  3. TRESIBA [Suspect]
     Active Substance: INSULIN DEGLUDEC
     Dosage: 10 IU,UNK
     Route: 058
     Dates: start: 20201117, end: 20201117
  4. TRESIBA [Suspect]
     Active Substance: INSULIN DEGLUDEC
     Indication: TYPE 2 DIABETES MELLITUS
     Dosage: 13-15 U, QN,
     Route: 058
     Dates: start: 20120701
  5. NOVORAPID [Suspect]
     Active Substance: INSULIN ASPART
     Dosage: 5 U, BEFORE BREAKFAST ,  6 U, EVENING
     Route: 058
     Dates: start: 20201116
  6. NOVORAPID [Suspect]
     Active Substance: INSULIN ASPART
     Dosage: 4 U, TID, BEFORE THREE MEALS
     Route: 058
     Dates: start: 20201117, end: 20201117

REACTIONS (3)
  - Hypoglycaemic coma [Recovered/Resolved]
  - Hyperhidrosis [Recovered/Resolved]
  - Pruritus [Recovered/Resolved]

NARRATIVE: CASE EVENT DATE: 20201116
